FAERS Safety Report 7159908-9 (Version None)
Quarter: 2010Q4

REPORT INFORMATION
  Report Type: 
  Country: None (occurrence: None)
  Receive Date: 20101214
  Receipt Date: 20101202
  Transmission Date: 20110411
  Serious: Yes (Other)
  Sender: FDA-Public Use
  Company Number: PHHY2010US82334

PATIENT
  Age: 63 Year
  Sex: Female

DRUGS (4)
  1. RECLAST [Suspect]
     Dosage: UNK
     Dates: start: 20101130
  2. DIOVAN [Concomitant]
  3. TROPROL [Concomitant]
  4. CRESTOR [Concomitant]

REACTIONS (6)
  - ARTHRALGIA [None]
  - COGNITIVE DISORDER [None]
  - HEADACHE [None]
  - NAUSEA [None]
  - VERTIGO [None]
  - VISUAL IMPAIRMENT [None]
